FAERS Safety Report 9301521 (Version 1)
Quarter: 2013Q2

REPORT INFORMATION
  Report Type: Spontaneous
  Country: US (occurrence: US)
  Receive Date: 20130521
  Receipt Date: 20130521
  Transmission Date: 20140414
  Serious: Yes (Hospitalization)
  Sender: FDA-Public Use
  Company Number: US-BAYER-2013-061616

PATIENT
  Age: 28 Year
  Sex: Female
  Weight: 114.74 kg

DRUGS (6)
  1. YAZ [Suspect]
  2. GIANVI [Suspect]
  3. CEPHALEXIN [Concomitant]
     Dosage: TAKE 1 CAPSULE THREE TIMES DAILY
     Route: 048
  4. MICROGESTIN FE [Concomitant]
     Dosage: 1 TAB DAILY
  5. IBUPROFEN [Concomitant]
     Dosage: 800 MG, UNK
     Route: 048
  6. AMOXICILLIN W/CLAVULANIC ACID [Concomitant]
     Dosage: TAKE 1 TABLET EVERY 12 HOURS
     Route: 048

REACTIONS (1)
  - Pulmonary embolism [None]
